FAERS Safety Report 10482818 (Version 1)
Quarter: 2014Q3

REPORT INFORMATION
  Report Type: Spontaneous
  Country: DE (occurrence: DE)
  Receive Date: 20140929
  Receipt Date: 20140929
  Transmission Date: 20150326
  Serious: Yes (Other)
  Sender: FDA-Public Use
  Company Number: DE-GILEAD-2014-0116612

PATIENT
  Age: 69 Year
  Sex: Male
  Weight: 76 kg

DRUGS (1)
  1. RANOLAZINE [Suspect]
     Active Substance: RANOLAZINE
     Indication: OXYGEN SUPPLEMENTATION
     Dosage: 375 MG, QD
     Route: 048
     Dates: start: 201403

REACTIONS (4)
  - Angina pectoris [Unknown]
  - Back pain [Unknown]
  - Off label use [Unknown]
  - Faeces hard [Unknown]

NARRATIVE: CASE EVENT DATE: 2014
